FAERS Safety Report 10680606 (Version 1)
Quarter: 2014Q4

REPORT INFORMATION
  Report Type: Spontaneous
  Country: US (occurrence: US)
  Receive Date: 20141229
  Receipt Date: 20141229
  Transmission Date: 20150529
  Serious: Yes (Hospitalization)
  Sender: FDA-Public Use
  Company Number: US-SA-2014SA092733

PATIENT
  Age: 55 Year
  Sex: Female

DRUGS (35)
  1. ACETYLSALICYLIC ACID [Concomitant]
     Active Substance: ASPIRIN
  2. SIMVASTATIN. [Concomitant]
     Active Substance: SIMVASTATIN
  3. AVELOX [Concomitant]
     Active Substance: MOXIFLOXACIN HYDROCHLORIDE
  4. CEFUROXIME. [Concomitant]
     Active Substance: CEFUROXIME
  5. PREVACID [Concomitant]
     Active Substance: LANSOPRAZOLE
  6. TYLENOL [Concomitant]
     Active Substance: ACETAMINOPHEN
  7. METOPROLOL SUCCINATE. [Concomitant]
     Active Substance: METOPROLOL SUCCINATE
  8. PROVENTIL [Concomitant]
     Active Substance: ALBUTEROL
  9. ASPIRIN ^BAYER^ [Concomitant]
     Active Substance: ASPIRIN
  10. AZITHROMYCIN [Concomitant]
     Active Substance: AZITHROMYCIN ANHYDROUS
  11. SULAR [Concomitant]
     Active Substance: NISOLDIPINE
  12. HYDROCODONE [Concomitant]
     Active Substance: HYDROCODONE
  13. METFORMIN [Concomitant]
     Active Substance: METFORMIN HYDROCHLORIDE
  14. ALEVE [Concomitant]
     Active Substance: NAPROXEN SODIUM
  15. LISINOPRIL. [Concomitant]
     Active Substance: LISINOPRIL
  16. SERTRALINE [Concomitant]
     Active Substance: SERTRALINE HYDROCHLORIDE
  17. GLIMEPIRIDE. [Concomitant]
     Active Substance: GLIMEPIRIDE
  18. ADVAIR HFA [Concomitant]
     Active Substance: FLUTICASONE PROPIONATE\SALMETEROL XINAFOATE
  19. PLAVIX [Suspect]
     Active Substance: CLOPIDOGREL BISULFATE
     Indication: ARTERIAL OCCLUSIVE DISEASE
     Route: 048
     Dates: start: 200507, end: 20101111
  20. AMLODIPINE [Concomitant]
     Active Substance: AMLODIPINE BESYLATE
  21. PREVACID [Concomitant]
     Active Substance: LANSOPRAZOLE
  22. ADVIL [Concomitant]
     Active Substance: IBUPROFEN
  23. LEVAQUIN [Concomitant]
     Active Substance: LEVOFLOXACIN
  24. ZOLOFT [Concomitant]
     Active Substance: SERTRALINE HYDROCHLORIDE
  25. ALPRAZOLAM. [Concomitant]
     Active Substance: ALPRAZOLAM
  26. OMEPRAZOLE. [Concomitant]
     Active Substance: OMEPRAZOLE
  27. SULFAMETHOXAZOLE [Concomitant]
     Active Substance: SULFAMETHOXAZOLE
  28. DIOVAN [Concomitant]
     Active Substance: VALSARTAN
  29. OXYBUTYNIN [Concomitant]
     Active Substance: OXYBUTYNIN
  30. METHYLPREDNISOLONE. [Concomitant]
     Active Substance: METHYLPREDNISOLONE
  31. PLAVIX [Suspect]
     Active Substance: CLOPIDOGREL BISULFATE
     Indication: STENT PLACEMENT
     Route: 048
     Dates: start: 200507, end: 20101111
  32. NITROGLYCERINE [Concomitant]
     Active Substance: NITROGLYCERIN
  33. THEOPHYLLINE [Concomitant]
     Active Substance: THEOPHYLLINE ANHYDROUS
  34. CIPROFLOXACIN. [Concomitant]
     Active Substance: CIPROFLOXACIN
  35. CEPHALEXIN. [Concomitant]
     Active Substance: CEPHALEXIN

REACTIONS (1)
  - Gastrointestinal haemorrhage [Unknown]

NARRATIVE: CASE EVENT DATE: 20101111
